FAERS Safety Report 7015734-2 (Version None)
Quarter: 2010Q3

REPORT INFORMATION
  Report Type: 
  Country: None (occurrence: None)
  Receive Date: 20100927
  Receipt Date: 20100426
  Transmission Date: 20110219
  Serious: No
  Sender: FDA-Public Use
  Company Number: US-ASTRAZENECA-2010SE05950

PATIENT
  Age: 889 Month
  Sex: Female
  Weight: 48.1 kg

DRUGS (3)
  1. ARIMIDEX [Suspect]
     Indication: BREAST CANCER STAGE I
     Route: 048
     Dates: start: 20070205
  2. VITAMINS [Concomitant]
  3. FISH OIL [Concomitant]

REACTIONS (6)
  - ALOPECIA [None]
  - DRY SKIN [None]
  - HYPERCHOLESTEROLAEMIA [None]
  - INSOMNIA [None]
  - PAIN IN EXTREMITY [None]
  - VISION BLURRED [None]
